FAERS Safety Report 4381147-5 (Version None)
Quarter: 2004Q2

REPORT INFORMATION
  Report Type: 
  Country: None (occurrence: None)
  Receive Date: 20040601
  Receipt Date: 20040218
  Transmission Date: 20050107
  Serious: No
  Sender: FDA-Public Use
  Company Number: FABR-10396

PATIENT
  Age: 48 Year
  Sex: Male

DRUGS (3)
  1. FABRAZYME [Suspect]
     Indication: FABRY'S DISEASE
     Dosage: 70 MG Q2WKS IV
     Route: 042
     Dates: start: 20030730
  2. HYDROXYZINE [Concomitant]
  3. TYLENOL [Concomitant]

REACTIONS (7)
  - BACK PAIN [None]
  - CHILLS [None]
  - DYSPNOEA [None]
  - FEELING ABNORMAL [None]
  - OROPHARYNGEAL SWELLING [None]
  - PAIN [None]
  - WHEEZING [None]
